FAERS Safety Report 6150345-2 (Version None)
Quarter: 2009Q2

REPORT INFORMATION
  Report Type: 
  Country: None (occurrence: None)
  Receive Date: 20090408
  Receipt Date: 20090408
  Transmission Date: 20091009
  Serious: Yes (Hospitalization)
  Sender: FDA-Public Use
  Company Number: None

PATIENT
  Age: 87 Year
  Sex: Male
  Weight: 53.3 kg

DRUGS (2)
  1. ISOSORBIDE DINITRATE [Suspect]
     Indication: ANGINA PECTORIS
     Dosage: 10 MG TID PO
     Route: 048
     Dates: start: 20011108, end: 20090330
  2. PROCHLORPERAZINE [Suspect]
     Indication: NAUSEA
     Dosage: 10 MG PRN PO
     Route: 048
     Dates: start: 20081006, end: 20090330

REACTIONS (1)
  - ORTHOSTATIC HYPOTENSION [None]
